FAERS Safety Report 22263893 (Version 1)
Quarter: 2023Q2

REPORT INFORMATION
  Report Type: Spontaneous
  Country: US (occurrence: US)
  Receive Date: 20230428
  Receipt Date: 20230428
  Transmission Date: 20230721
  Serious: No
  Sender: FDA-Public Use
  Company Number: US-GSK-US2023057400

PATIENT
  Age: 73 Year
  Sex: Female

DRUGS (1)
  1. NUCALA [Suspect]
     Active Substance: MEPOLIZUMAB
     Indication: Product used for unknown indication
     Dosage: 100 MG, Q4W, UPPER ARM, THIGH OR ABDOMEN
     Route: 058
     Dates: start: 20221112, end: 20230412

REACTIONS (5)
  - Fatigue [Unknown]
  - Illness [Unknown]
  - Headache [Unknown]
  - Sinusitis [Unknown]
  - Bedridden [Unknown]

NARRATIVE: CASE EVENT DATE: 20221212
